FAERS Safety Report 5894921-0 (Version None)
Quarter: 2008Q3

REPORT INFORMATION
  Report Type: 
  Country: None (occurrence: None)
  Receive Date: 20080924
  Receipt Date: 20080915
  Transmission Date: 20090109
  Serious: Yes (Other)
  Sender: FDA-Public Use
  Company Number: PHEH2008US08226

PATIENT
  Age: 5 Year
  Sex: Male

DRUGS (2)
  1. FOCALIN XR [Suspect]
     Dosage: 5 MG, QD
     Route: 048
  2. FOCALIN XR [Suspect]
     Dosage: 2.5 MG, UNK

REACTIONS (3)
  - CONDITION AGGRAVATED [None]
  - MYDRIASIS [None]
  - PSYCHOMOTOR HYPERACTIVITY [None]
